FAERS Safety Report 4347393-1 (Version None)
Quarter: 2004Q2

REPORT INFORMATION
  Report Type: 
  Country: None (occurrence: None)
  Receive Date: 20040426
  Receipt Date: 20040426
  Transmission Date: 20050107
  Serious: Yes (Hospitalization)
  Sender: FDA-Public Use
  Company Number: None

PATIENT
  Age: 28 Year
  Sex: Female
  Weight: 53.5244 kg

DRUGS (1)
  1. SUDAFED 12 HOUR [Suspect]
     Dosage: 1 1  ORAL
     Route: 048

REACTIONS (4)
  - ANXIETY [None]
  - HYPOAESTHESIA [None]
  - LETHARGY [None]
  - SENSATION OF HEAVINESS [None]
